FAERS Safety Report 14397004 (Version 1)
Quarter: 2018Q1

REPORT INFORMATION
  Report Type: Spontaneous
  Country: None (occurrence: US)
  Receive Date: 20180116
  Receipt Date: 20180116
  Transmission Date: 20180509
  Serious: No
  Sender: FDA-Public Use
  Company Number: US-ALLERGAN-1749689US

PATIENT
  Age: 54 Year
  Sex: Female

DRUGS (2)
  1. BOTOX COSMETIC [Suspect]
     Active Substance: ONABOTULINUMTOXINA
     Indication: SKIN WRINKLING
  2. BOTOX COSMETIC [Suspect]
     Active Substance: ONABOTULINUMTOXINA
     Indication: SKIN WRINKLING
     Dosage: UNK, SINGLE
     Route: 030
     Dates: start: 2017, end: 2017

REACTIONS (8)
  - Eye swelling [Unknown]
  - Brow ptosis [Unknown]
  - Injection site bruising [Unknown]
  - Ocular hyperaemia [Unknown]
  - Eyelid ptosis [Unknown]
  - Eyelid oedema [Unknown]
  - Therapeutic response unexpected [Unknown]
  - Injection site erythema [Unknown]
